FAERS Safety Report 4809703-8 (Version None)
Quarter: 2005Q4

REPORT INFORMATION
  Report Type: 
  Country: None (occurrence: None)
  Receive Date: 20051021
  Receipt Date: 20050705
  Transmission Date: 20060501
  Serious: Yes (Hospitalization, Other)
  Sender: FDA-Public Use
  Company Number: US_0502112119

PATIENT
  Age: 43 Year
  Sex: Male
  Weight: 72 kg

DRUGS (6)
  1. ZYPREXA [Suspect]
     Indication: BIPOLAR DISORDER
     Dosage: 15 MG/1 AT BEDTIME
     Dates: start: 19980911
  2. RISPERIDONE [Concomitant]
  3. DEPAKOTE [Concomitant]
  4. SERTRALINE HCL [Concomitant]
  5. TRAZODONE HCL [Concomitant]
  6. GLIPIZIDE [Concomitant]

REACTIONS (10)
  - ALANINE AMINOTRANSFERASE INCREASED [None]
  - ASPARTATE AMINOTRANSFERASE INCREASED [None]
  - BLOOD ALBUMIN INCREASED [None]
  - DIABETES MELLITUS [None]
  - DIABETIC KETOACIDOSIS [None]
  - LEUKOCYTOSIS [None]
  - PANCREATIC ENLARGEMENT [None]
  - PANCREATITIS [None]
  - PROTEIN TOTAL INCREASED [None]
  - SINUS TACHYCARDIA [None]
